FAERS Safety Report 12435385 (Version 1)
Quarter: 2016Q2

REPORT INFORMATION
  Report Type: Spontaneous
  Country: US (occurrence: US)
  Receive Date: 20160603
  Receipt Date: 20160603
  Transmission Date: 20160815
  Serious: No
  Sender: FDA-Public Use
  Company Number: US-ROCHE-1677010

PATIENT
  Sex: Male

DRUGS (6)
  1. COMPAZINE [Concomitant]
     Active Substance: PROCHLORPERAZINE MALEATE
  2. OXYCODONE [Concomitant]
     Active Substance: OXYCODONE
  3. MS CONTIN [Concomitant]
     Active Substance: MORPHINE SULFATE
  4. FLOMAX [Concomitant]
     Active Substance: TAMSULOSIN HYDROCHLORIDE
  5. XELODA [Suspect]
     Active Substance: CAPECITABINE
     Indication: RECTAL CANCER
     Route: 048
     Dates: start: 20140226
  6. DOCQLACE [Concomitant]
     Active Substance: DOCUSATE SODIUM

REACTIONS (1)
  - Pain in extremity [Unknown]
